FAERS Safety Report 8811588 (Version 1)
Quarter: 2012Q4

REPORT INFORMATION
  Report Type: Spontaneous
  Country: US (occurrence: None)
  Receive Date: 20120925
  Receipt Date: 20120925
  Transmission Date: 20130627
  Serious: Yes (Other)
  Sender: FDA-Public Use
  Company Number: None

PATIENT
  Age: 27 Year
  Sex: Female
  Weight: 77.57 kg

DRUGS (1)
  1. INCIVEK [Suspect]
     Indication: HEPATITIS C
     Dosage: Dose Form: Oral
Route: Oral 047
Frequency: tid
     Route: 048
     Dates: start: 20120621, end: 20120913

REACTIONS (5)
  - Pruritus [None]
  - Rash [None]
  - Drug ineffective [None]
  - Poor quality sleep [None]
  - Impaired work ability [None]
